FAERS Safety Report 15241163 (Version 1)
Quarter: 2018Q3

REPORT INFORMATION
  Report Type: Spontaneous
  Country: US (occurrence: US)
  Receive Date: 20180711
  Receipt Date: 20180711
  Transmission Date: 20181010
  Serious: No
  Sender: FDA-Public Use
  Company Number: None

PATIENT
  Age: 61 Year
  Sex: Male

DRUGS (2)
  1. MORPHINE [Suspect]
     Active Substance: MORPHINE
     Route: 042
     Dates: start: 20180328, end: 20180329
  2. MORPHINE [Suspect]
     Active Substance: MORPHINE
     Route: 048
     Dates: start: 20180328, end: 20180329

REACTIONS (10)
  - Blood pressure increased [None]
  - Acute kidney injury [None]
  - Respiratory failure [None]
  - Pain [None]
  - Miosis [None]
  - Blood sodium decreased [None]
  - Depressed level of consciousness [None]
  - Myoclonus [None]
  - Metabolic disorder [None]
  - Hypotension [None]
